FAERS Safety Report 7498737-3 (Version None)
Quarter: 2011Q2

REPORT INFORMATION
  Report Type: 
  Country: None (occurrence: None)
  Receive Date: 20110524
  Receipt Date: 20110516
  Transmission Date: 20111010
  Serious: Yes (Hospitalization, Other)
  Sender: FDA-Public Use
  Company Number: CA-ELI_LILLY_AND_COMPANY-CA201105004273

PATIENT
  Sex: Female

DRUGS (1)
  1. ZYPREXA [Suspect]
     Dosage: 5 MG, QD

REACTIONS (4)
  - ANAEMIA [None]
  - BRADYCARDIA [None]
  - PANCREATITIS [None]
  - CHOLECYSTITIS CHRONIC [None]
